FAERS Safety Report 14140752 (Version 3)
Quarter: 2017Q4

REPORT INFORMATION
  Report Type: Spontaneous
  Country: US (occurrence: US)
  Receive Date: 20171030
  Receipt Date: 20171204
  Transmission Date: 20180321
  Serious: Yes (Death)
  Sender: FDA-Public Use
  Company Number: US-PFIZER INC-2017465197

PATIENT
  Age: 44 Year
  Sex: Female
  Weight: 55.78 kg

DRUGS (2)
  1. IBRANCE [Suspect]
     Active Substance: PALBOCICLIB
     Dosage: 100 MG, CYCLIC (DAILY 21/28 DAYS)
     Route: 048
  2. IBRANCE [Suspect]
     Active Substance: PALBOCICLIB
     Indication: BREAST CANCER METASTATIC
     Dosage: 125 MG, CYCLIC (D1-21 Q28 DAYS)
     Route: 048
     Dates: start: 20171011

REACTIONS (13)
  - Nausea [Unknown]
  - Dyspnoea [Unknown]
  - Chromaturia [Unknown]
  - Neoplasm progression [Fatal]
  - Asthenia [Unknown]
  - Decreased appetite [Unknown]
  - Pruritus [Unknown]
  - Epistaxis [Unknown]
  - Glossodynia [Unknown]
  - Papule [Unknown]
  - Blood count abnormal [Unknown]
  - Glossitis [Unknown]
  - Vomiting [Unknown]
